FAERS Safety Report 9426400 (Version 1)
Quarter: 2013Q3

REPORT INFORMATION
  Report Type: Spontaneous
  Country: US (occurrence: US)
  Receive Date: 20130730
  Receipt Date: 20130730
  Transmission Date: 20140515
  Serious: Yes (Hospitalization)
  Sender: FDA-Public Use
  Company Number: US-BAYER-2013-091651

PATIENT
  Age: 40 Year
  Sex: Female

DRUGS (10)
  1. YASMIN [Suspect]
  2. CIPROFLOXACIN HCL [Concomitant]
     Dosage: UNK
     Dates: start: 20051104
  3. PENTAZOCINE AND NALOXONE [Concomitant]
     Dosage: UNK
     Dates: start: 20051104
  4. VICODIN [Concomitant]
     Dosage: UNK
     Dates: start: 20051107
  5. DOXYCYCLINE [Concomitant]
     Dosage: UNK
     Dates: start: 20051108
  6. DURAHIST [Concomitant]
     Dosage: UNK
     Dates: start: 20051230
  7. TUSSIONEX PENNKINETIC [Concomitant]
     Dosage: UNK
     Dates: start: 20060104
  8. BENZONATATE [Concomitant]
     Dosage: UNK
     Dates: start: 20060120
  9. NAPROXEN [Concomitant]
     Dosage: UNK
     Dates: start: 20060120
  10. TYLENOL #3 [Concomitant]

REACTIONS (1)
  - Deep vein thrombosis [Recovered/Resolved]
